FAERS Safety Report 9154615 (Version 2)
Quarter: 2013Q2

REPORT INFORMATION
  Report Type: Spontaneous
  Country: IT (occurrence: IT)
  Receive Date: 20130311
  Receipt Date: 20130402
  Transmission Date: 20140414
  Serious: Yes (Hospitalization)
  Sender: FDA-Public Use
  Company Number: IT-PFIZER INC-2013080384

PATIENT
  Age: 82 Year
  Sex: Female

DRUGS (7)
  1. ATENOLOL [Suspect]
     Indication: HYPERTENSION
     Dosage: 25 MG, DAILY
     Route: 048
     Dates: start: 20000101
  2. ENAPREN [Concomitant]
     Dosage: UNK
     Route: 065
  3. LASIX [Concomitant]
     Dosage: UNK
     Route: 065
  4. ALDACTONE [Concomitant]
     Dosage: UNK
     Route: 065
  5. KCL-RETARD [Concomitant]
     Dosage: UNK
     Route: 065
  6. DEURSIL [Concomitant]
     Dosage: UNK
     Route: 065
  7. ASA [Concomitant]
     Dosage: UNK
     Route: 065

REACTIONS (3)
  - Ischaemic cardiomyopathy [Recovered/Resolved]
  - Sinoatrial block [Recovered/Resolved]
  - Atrioventricular block [Recovered/Resolved]
